FAERS Safety Report 10256200 (Version 1)
Quarter: 2014Q2

REPORT INFORMATION
  Report Type: Report from Study
  Country: US (occurrence: US)
  Receive Date: 20140624
  Receipt Date: 20140624
  Transmission Date: 20141212
  Serious: Yes (Hospitalization)
  Sender: FDA-Public Use
  Company Number: US-ABBVIE-14P-163-1247563-00

PATIENT
  Age: 67 Year
  Sex: Male

DRUGS (4)
  1. HUMIRA [Suspect]
     Indication: COLITIS ULCERATIVE
     Route: 058
     Dates: start: 20140205, end: 201405
  2. HUMIRA [Suspect]
     Route: 058
     Dates: start: 20140606
  3. INSULIN [Concomitant]
     Indication: PRODUCT USED FOR UNKNOWN INDICATION
  4. UNKNOWN MEDICATIONS [Concomitant]
     Indication: PRODUCT USED FOR UNKNOWN INDICATION

REACTIONS (6)
  - Colitis [Recovering/Resolving]
  - Pneumonia [Recovering/Resolving]
  - Staphylococcal sepsis [Recovering/Resolving]
  - Clostridium difficile infection [Recovering/Resolving]
  - Dyspnoea [Unknown]
  - Local swelling [Unknown]
